FAERS Safety Report 24700509 (Version 1)
Quarter: 2024Q4

REPORT INFORMATION
  Report Type: Spontaneous
  Country: US (occurrence: US)
  Receive Date: 20241205
  Receipt Date: 20241205
  Transmission Date: 20250114
  Serious: Yes (Other)
  Sender: NOVARTIS
  Company Number: US-002147023-NVSC2024US230124

PATIENT

DRUGS (1)
  1. KESIMPTA [Suspect]
     Active Substance: OFATUMUMAB
     Indication: Relapsing-remitting multiple sclerosis
     Dosage: UNK (INFUSIONS)
     Route: 065

REACTIONS (4)
  - Blindness unilateral [Unknown]
  - Relapsing-remitting multiple sclerosis [Unknown]
  - Deafness unilateral [Unknown]
  - Paralysis [Unknown]
